FAERS Safety Report 19370352 (Version 3)
Quarter: 2021Q3

REPORT INFORMATION
  Report Type: Spontaneous
  Country: NL (occurrence: NL)
  Receive Date: 20210603
  Receipt Date: 20210729
  Transmission Date: 20211014
  Serious: Yes (Death, Hospitalization, Other)
  Sender: FDA-Public Use
  Company Number: NL-AMGEN-NLDSP2021085042

PATIENT
  Age: 67 Year
  Sex: Male
  Weight: 56 kg

DRUGS (1)
  1. BLINATUMOMAB [Suspect]
     Active Substance: BLINATUMOMAB
     Indication: ACUTE LYMPHOCYTIC LEUKAEMIA
     Dosage: UNK
     Route: 065

REACTIONS (3)
  - Idiopathic pulmonary fibrosis [Unknown]
  - COVID-19 [Unknown]
  - Death [Fatal]

NARRATIVE: CASE EVENT DATE: 20200929
